FAERS Safety Report 8100728-6 (Version None)
Quarter: 2012Q1

REPORT INFORMATION
  Report Type: 
  Country: None (occurrence: None)
  Receive Date: 20120129
  Receipt Date: 20111117
  Transmission Date: 20120608
  Serious: No
  Sender: FDA-Public Use
  Company Number: US-ABBOTT-11P-163-0875172-00

PATIENT
  Age: 18 Year
  Sex: Female

DRUGS (2)
  1. TPN [Concomitant]
     Indication: PRODUCT USED FOR UNKNOWN INDICATION
  2. HUMIRA [Suspect]
     Indication: CROHN'S DISEASE
     Dates: start: 20111017

REACTIONS (2)
  - INFLAMMATION [None]
  - INTESTINAL STENOSIS [None]
